FAERS Safety Report 8312705 (Version 3)
Quarter: 2014Q1

REPORT INFORMATION
  Report Type: Spontaneous
  Country: US (occurrence: US)
  Receive Date: 20111227
  Receipt Date: 20140204
  Transmission Date: 20141002
  Serious: Yes (Other)
  Sender: FDA-Public Use
  Company Number: US-ACTELION-A-US2011-58114

PATIENT
  Age: 54 Year
  Sex: Female
  Weight: 117.91 kg

DRUGS (11)
  1. TRACLEER [Suspect]
     Indication: PULMONARY ARTERIAL HYPERTENSION
     Dosage: 125 MG, BID
     Route: 048
     Dates: start: 201104
  2. VENTAVIS [Suspect]
     Indication: PULMONARY ARTERIAL HYPERTENSION
     Dosage: X6/DAY
     Route: 055
     Dates: start: 20111012
  3. SYNTHROID [Concomitant]
  4. TRILEPTAL [Concomitant]
  5. GEODON [Concomitant]
  6. TRAZODONE [Concomitant]
  7. ZYPREXA [Concomitant]
  8. CLONOPIN [Concomitant]
  9. TRICOR [Concomitant]
  10. TOPROL [Concomitant]
  11. HYDROXYCHLOROQUINE [Concomitant]

REACTIONS (5)
  - Bronchitis [Unknown]
  - Cough [Unknown]
  - Nasopharyngitis [Not Recovered/Not Resolved]
  - Throat irritation [Not Recovered/Not Resolved]
  - Nasal congestion [Not Recovered/Not Resolved]
